FAERS Safety Report 9647705 (Version 1)
Quarter: 2013Q4

REPORT INFORMATION
  Report Type: Spontaneous
  Country: US (occurrence: US)
  Receive Date: 20131028
  Receipt Date: 20131028
  Transmission Date: 20140711
  Serious: Yes (Other)
  Sender: FDA-Public Use
  Company Number: US-AMGEN-USASP2013075374

PATIENT
  Age: 60 Year
  Sex: Male
  Weight: 84.35 kg

DRUGS (1)
  1. ENBREL [Suspect]
     Indication: RHEUMATOID ARTHRITIS
     Dosage: 50 MG, QWK
     Route: 058

REACTIONS (3)
  - Haemorrhagic diathesis [Recovered/Resolved]
  - Sinus disorder [Recovered/Resolved]
  - Impaired healing [Recovered/Resolved]
